FAERS Safety Report 9053573 (Version 1)
Quarter: 2013Q1

REPORT INFORMATION
  Report Type: Spontaneous
  Country: None (occurrence: US)
  Receive Date: 20130208
  Receipt Date: 20130208
  Transmission Date: 20140127
  Serious: No
  Sender: FDA-Public Use
  Company Number: US-TARO-2012P1042389

PATIENT
  Sex: Female

DRUGS (1)
  1. NYSTATIN + TRIAMCINOLONE ACETONIDE CREAM USP [Suspect]

REACTIONS (3)
  - Inflammation [Unknown]
  - Erythema [Unknown]
  - Vaginal laceration [Unknown]
